FAERS Safety Report 8759485 (Version 2)
Quarter: 2013Q4

REPORT INFORMATION
  Report Type: Spontaneous
  Country: US (occurrence: US)
  Receive Date: 20120829
  Receipt Date: 20131101
  Transmission Date: 20140711
  Serious: No
  Sender: FDA-Public Use
  Company Number: US-MERCK-1207USA00057

PATIENT
  Age: 67 Year
  Sex: 0

DRUGS (1)
  1. FOSAMAX [Suspect]
     Dosage: UNK UNK, QW
     Route: 048

REACTIONS (2)
  - Tooth disorder [Unknown]
  - Dental caries [Unknown]
